FAERS Safety Report 11779329 (Version 4)
Quarter: 2015Q4

REPORT INFORMATION
  Report Type: Spontaneous
  Country: US (occurrence: US)
  Receive Date: 20151125
  Receipt Date: 20151125
  Transmission Date: 20160304
  Serious: No
  Sender: FDA-Public Use
  Company Number: US-APOTEX-2014AP001535

PATIENT

DRUGS (1)
  1. NICOTINE EXTENDED RELEASE TRANSDERMAL FILM [Suspect]
     Active Substance: NICOTINE
     Indication: SMOKING CESSATION THERAPY
     Dosage: 14 MG, UNK
     Route: 062
     Dates: start: 201402, end: 201402

REACTIONS (1)
  - Product adhesion issue [Recovered/Resolved]
